FAERS Safety Report 26061066 (Version 1)
Quarter: 2025Q4

REPORT INFORMATION
  Report Type: Other
  Country: US (occurrence: US)
  Receive Date: 20251118
  Receipt Date: 20251118
  Transmission Date: 20260118
  Serious: Yes (Hospitalization, Other)
  Sender: HLS THERAPEUTICS
  Company Number: US-HLS-202500382

PATIENT
  Age: 51 Year

DRUGS (4)
  1. CLOZAPINE [Suspect]
     Active Substance: CLOZAPINE
     Indication: Product used for unknown indication
     Route: 065
  2. UNSPECIFIED INGREDIENT [Concomitant]
     Active Substance: UNSPECIFIED INGREDIENT
     Route: 065
  3. LITHIUM [Concomitant]
     Active Substance: LITHIUM
     Route: 065
  4. ARIPIPRAZOLE [Concomitant]
     Active Substance: ARIPIPRAZOLE
     Route: 065

REACTIONS (5)
  - C-reactive protein increased [Unknown]
  - Aggression [Unknown]
  - Neuroleptic malignant syndrome [Unknown]
  - Therapeutic product effect incomplete [Unknown]
  - Suicide attempt [Unknown]
